FAERS Safety Report 14582214 (Version 4)
Quarter: 2019Q1

REPORT INFORMATION
  Report Type: Spontaneous
  Country: US (occurrence: US)
  Receive Date: 20180228
  Receipt Date: 20190315
  Transmission Date: 20190417
  Serious: Yes (Other)
  Sender: FDA-Public Use
  Company Number: US-SA-2018SA013762

PATIENT
  Sex: Female

DRUGS (1)
  1. DULCOLAX (BISACODYL) [Suspect]
     Active Substance: BISACODYL
     Dosage: 3 DF, QW
     Route: 065

REACTIONS (9)
  - Vertigo [Unknown]
  - Constipation [Unknown]
  - Drug ineffective [Unknown]
  - Hernia [Unknown]
  - Pain [Unknown]
  - Back pain [Unknown]
  - Affective disorder [Unknown]
  - Feeling abnormal [Unknown]
  - Muscle spasms [Unknown]
